FAERS Safety Report 9643231 (Version 3)
Quarter: 2014Q1

REPORT INFORMATION
  Report Type: Spontaneous
  Country: US (occurrence: US)
  Receive Date: 20131024
  Receipt Date: 20140227
  Transmission Date: 20141002
  Serious: Yes (Hospitalization, Other)
  Sender: FDA-Public Use
  Company Number: US-ABBVIE-13P-163-1159065-00

PATIENT
  Age: 43 Year
  Sex: Male
  Weight: 102 kg

DRUGS (5)
  1. HUMIRA [Suspect]
     Indication: PSORIATIC ARTHROPATHY
     Dates: start: 201303, end: 20130920
  2. PRILOSEC [Concomitant]
     Indication: PRODUCT USED FOR UNKNOWN INDICATION
     Dates: end: 20130920
  3. NAPROXEN [Concomitant]
     Indication: PRODUCT USED FOR UNKNOWN INDICATION
  4. NEXIUM [Concomitant]
     Indication: PRODUCT USED FOR UNKNOWN INDICATION
  5. PREDNISONE [Concomitant]
     Indication: PRODUCT USED FOR UNKNOWN INDICATION
     Dates: start: 20131018

REACTIONS (9)
  - Cervical radiculopathy [Recovering/Resolving]
  - Peripheral motor neuropathy [Recovering/Resolving]
  - Cerebrovascular accident [Not Recovered/Not Resolved]
  - Muscle atrophy [Unknown]
  - Asthenia [Unknown]
  - Musculoskeletal pain [Unknown]
  - Cubital tunnel syndrome [Unknown]
  - Spinal osteoarthritis [Unknown]
  - Transaminases increased [Unknown]
